FAERS Safety Report 8941508 (Version 1)
Quarter: 2012Q4

REPORT INFORMATION
  Report Type: Report from Study
  Country: DE (occurrence: DE)
  Receive Date: 20121203
  Receipt Date: 20121203
  Transmission Date: 20130627
  Serious: Yes (Life-Threatening, Other)
  Sender: FDA-Public Use
  Company Number: DE-B.I. PHARMACEUTICALS,INC./RIDGEFIELD-2012-DE-02460DE

PATIENT
  Age: 78 Year
  Sex: Male

DRUGS (6)
  1. PRADAXA [Suspect]
     Dosage: 300 mg
     Route: 048
     Dates: start: 20121011, end: 20121013
  2. ZOPICLONE [Concomitant]
     Dosage: 3.75 mg
  3. CEFUROXIN [Concomitant]
     Dosage: 1500 mg
     Dates: start: 20121013
  4. ASS [Concomitant]
     Dosage: 1 anz
     Dates: end: 20121110
  5. TOREM [Concomitant]
     Dosage: 2 anz
  6. VOLTAREN RESINAT [Concomitant]
     Dosage: 2 anz

REACTIONS (3)
  - Haematemesis [Not Recovered/Not Resolved]
  - Melaena [Not Recovered/Not Resolved]
  - Renal failure acute [Not Recovered/Not Resolved]
